FAERS Safety Report 20807444 (Version 1)
Quarter: 2022Q2

REPORT INFORMATION
  Report Type: Spontaneous
  Country: US (occurrence: None)
  Receive Date: 20220509
  Receipt Date: 20220509
  Transmission Date: 20220721
  Serious: No
  Sender: FDA-Public Use
  Company Number: None

PATIENT
  Age: 84 Year
  Sex: Male
  Weight: 170 kg

DRUGS (1)
  1. SPIRONOLACTONE [Suspect]
     Active Substance: SPIRONOLACTONE
     Indication: Acute kidney injury
     Dosage: FREQUENCY : DAILY;?
     Route: 048
     Dates: end: 20220217

REACTIONS (3)
  - Asthenia [None]
  - Dysphagia [None]
  - Hyperkalaemia [None]

NARRATIVE: CASE EVENT DATE: 20220217
